FAERS Safety Report 23991224 (Version 2)
Quarter: 2024Q2

REPORT INFORMATION
  Report Type: Spontaneous
  Country: US (occurrence: US)
  Receive Date: 20240619
  Receipt Date: 20240628
  Transmission Date: 20240716
  Serious: No
  Sender: FDA-Public Use
  Company Number: US-PFIZER INC-PV202400079596

PATIENT
  Age: 43 Year
  Sex: Female

DRUGS (4)
  1. SOMAVERT [Suspect]
     Active Substance: PEGVISOMANT
     Indication: Acromegaly
     Dosage: 40 MG
     Route: 058
     Dates: start: 20240513
  2. SOMAVERT [Suspect]
     Active Substance: PEGVISOMANT
     Dosage: 10 MG, DAILY
     Route: 058
     Dates: start: 20240514, end: 20240610
  3. SOMAVERT [Suspect]
     Active Substance: PEGVISOMANT
     Dosage: 10 MG, ALTERNATE DAY
     Dates: start: 20240610, end: 20240612
  4. SOMAVERT [Suspect]
     Active Substance: PEGVISOMANT
     Dosage: TWICE WEEKLY
     Route: 058
     Dates: start: 20240614

REACTIONS (4)
  - Bone pain [Recovering/Resolving]
  - Malaise [Unknown]
  - Loss of personal independence in daily activities [Unknown]
  - Off label use [Unknown]

NARRATIVE: CASE EVENT DATE: 20240501
